FAERS Safety Report 4371146-1 (Version None)
Quarter: 2004Q2

REPORT INFORMATION
  Report Type: 
  Country: None (occurrence: None)
  Receive Date: 20040601
  Receipt Date: 20040518
  Transmission Date: 20050107
  Serious: Yes (Hospitalization)
  Sender: FDA-Public Use
  Company Number: DE-JNJFOC-20040504262

PATIENT
  Age: 66 Year
  Sex: Female
  Weight: 81 kg

DRUGS (3)
  1. REMICADE [Suspect]
     Indication: RHEUMATOID ARTHRITIS
     Dosage: 200-300 MG PER INFUSION
     Route: 042
     Dates: start: 20010301, end: 20040416
  2. LEFLUNOMIDE [Concomitant]
  3. PREDNISOLONE [Concomitant]

REACTIONS (4)
  - DYSPNOEA EXERTIONAL [None]
  - GENERAL PHYSICAL HEALTH DETERIORATION [None]
  - SYSTEMIC LUPUS ERYTHEMATOSUS [None]
  - WHITE BLOOD CELL COUNT DECREASED [None]
